APPROVED DRUG PRODUCT: DUTOPROL
Active Ingredient: HYDROCHLOROTHIAZIDE; METOPROLOL SUCCINATE
Strength: 12.5MG;EQ 50MG TARTRATE **Federal Register determination that product was not discontinued or withdrawn for safety or effectiveness reasons**
Dosage Form/Route: TABLET, EXTENDED RELEASE;ORAL
Application: N021956 | Product #002
Applicant: CONCORDIA PHARMACEUTICALS INC
Approved: Aug 28, 2006 | RLD: Yes | RS: No | Type: DISCN